FAERS Safety Report 11473536 (Version 1)
Quarter: 2015Q3

REPORT INFORMATION
  Report Type: Spontaneous
  Country: US (occurrence: None)
  Receive Date: 20150902
  Receipt Date: 20150902
  Transmission Date: 20151125
  Serious: Yes (Hospitalization)
  Sender: FDA-Public Use
  Company Number: 1000074087

PATIENT
  Age: 62 Year
  Sex: Male

DRUGS (12)
  1. DEXAMETHASONE (DEXAMETHASONE) [Suspect]
     Active Substance: DEXAMETHASONE
     Dates: end: 201403
  2. FUROSEMIDE. [Concomitant]
     Active Substance: FUROSEMIDE
  3. LORTAB (HYDROCODONE, ACETAMINOPHEN) [Concomitant]
  4. TRAZOREL (TRAZODONE HYDROCHLORIDE) [Suspect]
     Active Substance: TRAZODONE HYDROCHLORIDE
     Indication: PRODUCT USED FOR UNKNOWN INDICATION
  5. ALENDRONATE SODIUM. [Concomitant]
     Active Substance: ALENDRONATE SODIUM
  6. REVLIMID [Suspect]
     Active Substance: LENALIDOMIDE
     Indication: PLASMA CELL MYELOMA
     Dosage: 5 MG 21 IN 21 D
     Route: 048
     Dates: start: 20120227
  7. COREG [Concomitant]
     Active Substance: CARVEDILOL
  8. DIGOXIN. [Concomitant]
     Active Substance: DIGOXIN
  9. SIMVASTATIN. [Concomitant]
     Active Substance: SIMVASTATIN
  10. TRAZODONE HYDROCHLORIDE. [Concomitant]
     Active Substance: TRAZODONE HYDROCHLORIDE
  11. CELEXA [Suspect]
     Active Substance: CITALOPRAM HYDROBROMIDE
     Indication: PRODUCT USED FOR UNKNOWN INDICATION
  12. TRICOR [Concomitant]
     Active Substance: FENOFIBRATE

REACTIONS (2)
  - Depression [None]
  - Suicide attempt [None]

NARRATIVE: CASE EVENT DATE: 20140714
